FAERS Safety Report 4269889-3 (Version None)
Quarter: 2004Q1

REPORT INFORMATION
  Report Type: 
  Country: None (occurrence: None)
  Receive Date: 20040112
  Receipt Date: 20040112
  Transmission Date: 20041129
  Serious: Yes (Hospitalization)
  Sender: FDA-Public Use
  Company Number: None

PATIENT
  Age: 45 Year
  Sex: Male

DRUGS (4)
  1. NPH ILETIN II [Suspect]
     Indication: DIABETES MELLITUS INSULIN-DEPENDENT
     Dosage: 10 Q AM 20 Q PM
     Dates: start: 20021101
  2. INDOMETHACIN [Concomitant]
  3. METFORMIN HCL [Concomitant]
  4. PAROXETINE [Concomitant]

REACTIONS (1)
  - HYPOGLYCAEMIA [None]
